FAERS Safety Report 7241395-3 (Version None)
Quarter: 2011Q1

REPORT INFORMATION
  Report Type: 
  Country: None (occurrence: None)
  Receive Date: 20110120
  Receipt Date: 20110120
  Transmission Date: 20110831
  Serious: Yes (Other)
  Sender: FDA-Public Use
  Company Number: None

PATIENT
  Age: 73 Year
  Sex: Female
  Weight: 60 kg

DRUGS (2)
  1. OZURDEX [Suspect]
     Indication: RETINAL SCAR
     Route: 021
     Dates: start: 20110111
  2. LUCENTIS [Suspect]

REACTIONS (1)
  - VISION BLURRED [None]
